FAERS Safety Report 14026732 (Version 1)
Quarter: 2017Q3

REPORT INFORMATION
  Report Type: Spontaneous
  Country: BR (occurrence: BR)
  Receive Date: 20170929
  Receipt Date: 20170929
  Transmission Date: 20171128
  Serious: Yes (Other)
  Sender: FDA-Public Use
  Company Number: BR-NOVEN PHARMACEUTICALS, INC.-BR2016002719

PATIENT

DRUGS (3)
  1. FORXIGA [Concomitant]
     Active Substance: DAPAGLIFLOZIN
     Dosage: 10 MG, UNK
     Dates: start: 201610
  2. ESTRADIOL/NORETHISTERONE ACETATE [Suspect]
     Active Substance: ESTRADIOL\NORETHINDRONE ACETATE
     Indication: HORMONE REPLACEMENT THERAPY
     Dosage: 1 DF
     Route: 062
  3. METFORMIN [Concomitant]
     Active Substance: METFORMIN HYDROCHLORIDE
     Dosage: 500 MG, UNK
     Dates: start: 201510

REACTIONS (13)
  - Depression [Recovering/Resolving]
  - Skin irritation [Unknown]
  - Haemorrhage [Not Recovered/Not Resolved]
  - Insomnia [Unknown]
  - Malabsorption from application site [Unknown]
  - Middle insomnia [Unknown]
  - Hot flush [Recovering/Resolving]
  - Muscle spasms [Recovering/Resolving]
  - Drug ineffective [Unknown]
  - Discomfort [Unknown]
  - Product quality issue [Unknown]
  - Product adhesion issue [Unknown]
  - Product storage error [Unknown]

NARRATIVE: CASE EVENT DATE: 201605
